APPROVED DRUG PRODUCT: CAPLYTA
Active Ingredient: LUMATEPERONE TOSYLATE
Strength: EQ 10.5MG BASE
Dosage Form/Route: CAPSULE;ORAL
Application: N209500 | Product #002
Applicant: INTRA-CELLULAR THERAPIES INC
Approved: Apr 22, 2022 | RLD: Yes | RS: No | Type: RX

PATENTS:
Patent 12122792 | Expires: Dec 10, 2040
Patent 12122792 | Expires: Dec 10, 2040
Patent 11806348 | Expires: Aug 30, 2039
Patent 11806348 | Expires: Aug 30, 2039
Patent 12122792 | Expires: Dec 10, 2040
Patent 11980617 | Expires: Oct 27, 2039
Patent 12409176 | Expires: Mar 15, 2039
Patent 9199995 | Expires: Mar 12, 2029
Patent 11806348 | Expires: Aug 30, 2039
Patent 11690842 | Expires: Aug 30, 2039
Patent 11052084 | Expires: Aug 30, 2039
Patent RE48839 | Expires: Aug 19, 2033
Patent 11980617 | Expires: Oct 27, 2039
Patent 11690842 | Expires: Aug 30, 2039
Patent 11690842 | Expires: Aug 30, 2039
Patent 11052084 | Expires: Aug 30, 2039
Patent 11052084 | Expires: Aug 30, 2039
Patent 11026951 | Expires: Dec 3, 2034
Patent 10695345 | Expires: Aug 30, 2039
Patent 10117867 | Expires: May 27, 2029
Patent 9956227 | Expires: Dec 3, 2034
Patent 9199995 | Expires: Mar 12, 2029
Patent RE48839 | Expires: Aug 19, 2033
Patent RE48839 | Expires: Aug 19, 2033
Patent 8648077 | Expires: Dec 1, 2029
Patent 9168258 | Expires: May 27, 2029
Patent 11753419 | Expires: Dec 10, 2040
Patent 12410195 | Expires: Dec 10, 2040
Patent RE48825 | Expires: Mar 12, 2029
Patent 9616061 | Expires: May 27, 2029
Patent 10464938 | Expires: Mar 12, 2028

EXCLUSIVITY:
Code: I-904 | Date: Nov 5, 2028